FAERS Safety Report 10506305 (Version 8)
Quarter: 2015Q1

REPORT INFORMATION
  Report Type: Spontaneous
  Country: US (occurrence: US)
  Receive Date: 20141009
  Receipt Date: 20150127
  Transmission Date: 20150720
  Serious: Yes (Other)
  Sender: FDA-Public Use
  Company Number: US-UNITED THERAPEUTICS-UNT-2014-008552

PATIENT
  Age: 64 Year
  Sex: Female
  Weight: 61.22 kg

DRUGS (6)
  1. REMODULIN [Suspect]
     Active Substance: TREPROSTINIL
     Dosage: 0.021 ?G/KG, CONTINUING
     Route: 058
     Dates: start: 20130912
  2. ADCIRCA [Concomitant]
     Active Substance: TADALAFIL
     Indication: PRODUCT USED FOR UNKNOWN INDICATION
  3. REMODULIN [Suspect]
     Active Substance: TREPROSTINIL
     Indication: PULMONARY ARTERIAL HYPERTENSION
     Dosage: 0.021 ?G/KG, CONTINUING
     Route: 058
     Dates: start: 20130912
  4. REVATIO [Concomitant]
     Active Substance: SILDENAFIL CITRATE
     Indication: PRODUCT USED FOR UNKNOWN INDICATION
  5. WARFARIN [Concomitant]
     Active Substance: WARFARIN
     Indication: PRODUCT USED FOR UNKNOWN INDICATION
  6. LETAIRIS [Concomitant]
     Active Substance: AMBRISENTAN
     Indication: PRODUCT USED FOR UNKNOWN INDICATION

REACTIONS (26)
  - Dyspnoea [Unknown]
  - Oedema peripheral [Unknown]
  - Infusion site induration [Unknown]
  - Infusion site discolouration [Unknown]
  - Wheezing [Unknown]
  - Infusion site oedema [Unknown]
  - Drug dose omission [Unknown]
  - Productive cough [Unknown]
  - Infusion site vesicles [Unknown]
  - Fluid overload [Unknown]
  - Pyrexia [Unknown]
  - Anxiety [Unknown]
  - Infusion site scar [Unknown]
  - Dizziness [Unknown]
  - Infusion site nodule [Unknown]
  - Musculoskeletal pain [Unknown]
  - Infusion site erythema [Unknown]
  - Discomfort [Unknown]
  - Depressed mood [Unknown]
  - Weight decreased [Unknown]
  - Infusion site pain [Unknown]
  - Catheter site extravasation [Unknown]
  - Sputum discoloured [Unknown]
  - Injection site discharge [Unknown]
  - Chills [Unknown]
  - Spinal pain [Unknown]

NARRATIVE: CASE EVENT DATE: 2014
